FAERS Safety Report 11792910 (Version 1)
Quarter: 2015Q4

REPORT INFORMATION
  Report Type: Report from Study
  Country: US (occurrence: US)
  Receive Date: 20151202
  Receipt Date: 20151202
  Transmission Date: 20160305
  Serious: Yes (Hospitalization, Other)
  Sender: FDA-Public Use
  Company Number: US-GILEAD-2015-0185418

PATIENT
  Age: 75 Year
  Sex: Female

DRUGS (10)
  1. AZITHROMYCIN [Concomitant]
     Active Substance: AZITHROMYCIN ANHYDROUS
  2. ELIQUIS [Concomitant]
     Active Substance: APIXABAN
  3. CARTIA XT [Concomitant]
     Active Substance: DILTIAZEM HYDROCHLORIDE
  4. FUROSEMIDE. [Concomitant]
     Active Substance: FUROSEMIDE
  5. NYSTATIN. [Concomitant]
     Active Substance: NYSTATIN
  6. IBANDRONATE [Concomitant]
     Active Substance: IBANDRONATE SODIUM
  7. SILDENAFIL. [Concomitant]
     Active Substance: SILDENAFIL
  8. PANTOPRAZOLE [Concomitant]
     Active Substance: PANTOPRAZOLE SODIUM
  9. AMBRISENTAN [Suspect]
     Active Substance: AMBRISENTAN
     Indication: PULMONARY ARTERIAL HYPERTENSION
     Dosage: 10 MG, QD
     Route: 065
     Dates: start: 20140715
  10. METOPROLOL TARTRAS [Concomitant]

REACTIONS (1)
  - Respiratory failure [Unknown]
